FAERS Safety Report 5752930-6 (Version None)
Quarter: 2008Q2

REPORT INFORMATION
  Report Type: 
  Country: None (occurrence: None)
  Receive Date: 20080527
  Receipt Date: 20080519
  Transmission Date: 20081010
  Serious: Yes (Death, Disabling)
  Sender: FDA-Public Use
  Company Number: DAV-AE-MTX-08-006

PATIENT
  Age: 6 Year
  Sex: Male

DRUGS (9)
  1. METHOTREXATE [Suspect]
     Indication: NON-HODGKIN'S LYMPHOMA
     Dosage: INTRATHECAL
     Route: 037
  2. PREDNISONE TAB [Concomitant]
  3. CYCLOPHOSPHAMIDE [Concomitant]
  4. VINCRISTINE [Concomitant]
  5. IFOSFAMIDE [Concomitant]
  6. CYTARABINE [Concomitant]
  7. ETOPOSIDE [Concomitant]
  8. DOXORUBICIN HCL [Concomitant]
  9. LEUCOVORIN CALCIUM [Concomitant]

REACTIONS (7)
  - APHASIA [None]
  - CEREBRAL HAEMATOMA [None]
  - DEPRESSED LEVEL OF CONSCIOUSNESS [None]
  - DISEASE PROGRESSION [None]
  - HEMIPARESIS [None]
  - PARTIAL SEIZURES [None]
  - REFUSAL OF TREATMENT BY RELATIVE [None]
